FAERS Safety Report 6660003-3 (Version None)
Quarter: 2010Q1

REPORT INFORMATION
  Report Type: 
  Country: None (occurrence: None)
  Receive Date: 20100331
  Receipt Date: 20100323
  Transmission Date: 20100710
  Serious: Yes (Death)
  Sender: FDA-Public Use
  Company Number: US-BIOGENIDEC-2010BI009962

PATIENT
  Age: 37 Year
  Sex: Male

DRUGS (3)
  1. AVONEX [Suspect]
     Indication: MULTIPLE SCLEROSIS
     Route: 030
     Dates: start: 20000101, end: 20030801
  2. AVONEX [Suspect]
     Route: 030
     Dates: start: 20030901, end: 20070801
  3. AVONEX [Suspect]
     Route: 030
     Dates: start: 20091101

REACTIONS (1)
  - DEATH [None]
